FAERS Safety Report 9302219 (Version 1)
Quarter: 2013Q2

REPORT INFORMATION
  Report Type: Spontaneous
  Country: US (occurrence: US)
  Receive Date: 20130522
  Receipt Date: 20130522
  Transmission Date: 20140414
  Serious: No
  Sender: FDA-Public Use
  Company Number: US-009507513-1305USA009545

PATIENT
  Age: 66 Year
  Sex: Female

DRUGS (2)
  1. JANUVIA [Suspect]
     Indication: TYPE 2 DIABETES MELLITUS
     Dosage: 100 MG, ONCE DAILY
     Route: 048
     Dates: start: 20130423, end: 201305
  2. METFORMIN [Concomitant]

REACTIONS (5)
  - Middle insomnia [Unknown]
  - Diarrhoea [Unknown]
  - Frequent bowel movements [Unknown]
  - Flatulence [Unknown]
  - Gastrointestinal disorder [Unknown]
